FAERS Safety Report 10517031 (Version 2)
Quarter: 2014Q4

REPORT INFORMATION
  Report Type: Spontaneous
  Country: FR (occurrence: GB)
  Receive Date: 20141014
  Receipt Date: 20141014
  Transmission Date: 20150528
  Serious: Yes (Hospitalization)
  Sender: FDA-Public Use
  Company Number: FR-MYLANLABS-2007S1000574

PATIENT

DRUGS (2)
  1. MERCAPTAMINE BITARTRATE [Suspect]
     Active Substance: CYSTEAMINE
     Dosage: UNK UNK,QD
     Route: 048
  2. MERCAPTAMINE BITARTRATE [Suspect]
     Active Substance: CYSTEAMINE
     Indication: CYSTINOSIS
     Dosage: 200MG QD
     Route: 048

REACTIONS (3)
  - Decreased appetite [Recovered/Resolved]
  - Abdominal pain [Recovered/Resolved]
  - Nausea [Recovered/Resolved]
